FAERS Safety Report 7794958 (Version 2)
Quarter: 2014Q2

REPORT INFORMATION
  Report Type: Spontaneous
  Country: US (occurrence: US)
  Receive Date: 20110201
  Receipt Date: 20140626
  Transmission Date: 20141212
  Serious: Yes (Other)
  Sender: FDA-Public Use
  Company Number: US-PFIZER INC-2011019391

PATIENT
  Age: 64 Year
  Sex: Female

DRUGS (1)
  1. VORICONAZOLE [Suspect]
     Indication: BRONCHOPULMONARY ASPERGILLOSIS
     Dosage: UNK

REACTIONS (4)
  - Periostitis [Recovered/Resolved]
  - Exostosis [Recovered/Resolved]
  - Fluoride increased [Recovered/Resolved]
  - Pain [Recovering/Resolving]
